FAERS Safety Report 20290411 (Version 1)
Quarter: 2022Q1

REPORT INFORMATION
  Report Type: Spontaneous
  Country: US (occurrence: US)
  Receive Date: 20220104
  Receipt Date: 20220104
  Transmission Date: 20220423
  Serious: No
  Sender: FDA-Public Use
  Company Number: US-GLENMARK PHARMACEUTICALS-2021GMK068769

PATIENT

DRUGS (1)
  1. MUPIROCIN [Suspect]
     Active Substance: MUPIROCIN
     Indication: Infection
     Dosage: UNK
     Route: 065

REACTIONS (5)
  - Lip discolouration [Recovering/Resolving]
  - Taste disorder [Recovering/Resolving]
  - Oral discomfort [Recovering/Resolving]
  - Paraesthesia oral [Recovering/Resolving]
  - Accidental exposure to product [Unknown]
